FAERS Safety Report 4625444-4 (Version None)
Quarter: 2005Q1

REPORT INFORMATION
  Report Type: 
  Country: None (occurrence: None)
  Receive Date: 20050325
  Receipt Date: 20050117
  Transmission Date: 20050727
  Serious: No
  Sender: FDA-Public Use
  Company Number: USA050188448

PATIENT
  Age: 59 Year
  Sex: Female

DRUGS (3)
  1. FORTEO [Suspect]
     Indication: OSTEOPOROSIS
     Dosage: 20 UG/ 1 DAY
     Dates: start: 20041201
  2. PLAVIX [Concomitant]
  3. ACETYLSALICYLIC ACID SRT [Concomitant]

REACTIONS (2)
  - FEAR [None]
  - INJECTION SITE HAEMORRHAGE [None]
